FAERS Safety Report 7817232-2 (Version None)
Quarter: 2011Q4

REPORT INFORMATION
  Report Type: 
  Country: None (occurrence: None)
  Receive Date: 20111017
  Receipt Date: 20111012
  Transmission Date: 20120403
  Serious: Yes (Death, Hospitalization, Other)
  Sender: FDA-Public Use
  Company Number: PHHY2011CA23009

PATIENT
  Sex: Male

DRUGS (1)
  1. SANDOSTATIN LAR [Suspect]
     Indication: NEUROENDOCRINE TUMOUR
     Dosage: 20 MG EVERY 04 WEEKS
     Route: 030
     Dates: start: 20091002, end: 20110718

REACTIONS (8)
  - DEATH [None]
  - FALL [None]
  - OEDEMA PERIPHERAL [None]
  - BLOOD PRESSURE SYSTOLIC INCREASED [None]
  - RECTAL HAEMORRHAGE [None]
  - JOINT SWELLING [None]
  - ABDOMINAL PAIN [None]
  - WEIGHT DECREASED [None]
